FAERS Safety Report 9121801 (Version 1)
Quarter: 2012Q4

REPORT INFORMATION
  Report Type: Spontaneous
  Country: US (occurrence: None)
  Receive Date: 20121026
  Receipt Date: 20121026
  Transmission Date: 20130627
  Serious: No
  Sender: FDA-Public Use
  Company Number: 2012US-004329

PATIENT
  Age: 61 Year
  Sex: Female
  Weight: 51.3 kg

DRUGS (2)
  1. OMONTYS (PEGINESATIDE) SOLUTION FOR INJECTION [Suspect]
     Dosage: 6 mg,  Q 4 weeks,  Intravenous
     Route: 042
     Dates: start: 20120803, end: 20120803
  2. ZEMPLAR (PARICALCITOL) [Concomitant]

REACTIONS (2)
  - Pruritus [None]
  - Headache [None]
